FAERS Safety Report 15631921 (Version 1)
Quarter: 2018Q4

REPORT INFORMATION
  Report Type: Spontaneous
  Country: JP (occurrence: JP)
  Receive Date: 20181119
  Receipt Date: 20181119
  Transmission Date: 20190205
  Serious: Yes (Death, Other)
  Sender: FDA-Public Use
  Company Number: JP-OTSUKA-2018_035076

PATIENT
  Age: 94 Year
  Sex: Female

DRUGS (2)
  1. FUROSEMIDE. [Concomitant]
     Active Substance: FUROSEMIDE
     Indication: PRODUCT USED FOR UNKNOWN INDICATION
     Dosage: UNK
     Route: 042
  2. SAMSCA [Suspect]
     Active Substance: TOLVAPTAN
     Indication: PLEURAL EFFUSION
     Dosage: 3.75 MG, QD
     Route: 048

REACTIONS (4)
  - Blood sodium increased [Recovered/Resolved]
  - Cerebral infarction [Fatal]
  - Product use in unapproved indication [Unknown]
  - Pneumonia [Fatal]

NARRATIVE: CASE EVENT DATE: 201804
